FAERS Safety Report 23985072 (Version 1)
Quarter: 2024Q2

REPORT INFORMATION
  Report Type: Spontaneous
  Country: US (occurrence: US)
  Receive Date: 20240618
  Receipt Date: 20240618
  Transmission Date: 20240716
  Serious: Yes (Hospitalization, Other)
  Sender: FDA-Public Use
  Company Number: US-AUROBINDO-AUR-APL-2024-029464

PATIENT
  Age: 46 Year
  Sex: Male

DRUGS (2)
  1. CLOZAPINE [Suspect]
     Active Substance: CLOZAPINE
     Indication: Product used for unknown indication
     Dosage: 450 MILLIGRAM (PATIENT SUPPOSE TO BE ON 300 MG BUT CONTINUED ON 450MG)
     Route: 048
  2. CLOZAPINE [Suspect]
     Active Substance: CLOZAPINE
     Dosage: 400 MILLIGRAM, 1 TOTAL ( IN HOSPITAL PATIENT IS TAKING 400MG IN TOTAL)
     Route: 048

REACTIONS (4)
  - Hallucination [Unknown]
  - Muscle twitching [Unknown]
  - Hypoacusis [Unknown]
  - Wrong drug [Unknown]
